FAERS Safety Report 12927080 (Version 3)
Quarter: 2016Q4

REPORT INFORMATION
  Report Type: Report from Study
  Country: US (occurrence: US)
  Receive Date: 20161109
  Receipt Date: 20161122
  Transmission Date: 20170207
  Serious: Yes (Hospitalization, Other)
  Sender: FDA-Public Use
  Company Number: US-GILEAD-2016-0241986

PATIENT
  Age: 86 Year
  Sex: Male

DRUGS (2)
  1. RANOLAZINE [Suspect]
     Active Substance: RANOLAZINE
     Indication: ANGINA PECTORIS
     Dosage: 500 MG, UNK
     Route: 048
  2. RANOLAZINE [Suspect]
     Active Substance: RANOLAZINE
     Dosage: 1000 MG, UNK
     Route: 048

REACTIONS (7)
  - Hypoacusis [Unknown]
  - Visual acuity reduced [Unknown]
  - Memory impairment [Unknown]
  - Hearing aid user [Unknown]
  - Anaemia [Unknown]
  - Macular degeneration [Unknown]
  - Blindness [Unknown]
